FAERS Safety Report 16458154 (Version 1)
Quarter: 2019Q2

REPORT INFORMATION
  Report Type: Spontaneous
  Country: US (occurrence: US)
  Receive Date: 20190620
  Receipt Date: 20190620
  Transmission Date: 20190711
  Serious: No
  Sender: FDA-Public Use
  Company Number: US-MYLANLABS-2019M1050151

PATIENT
  Sex: Female
  Weight: 53 kg

DRUGS (1)
  1. GLATIRAMER [Suspect]
     Active Substance: GLATIRAMER
     Indication: MULTIPLE SCLEROSIS
     Dosage: UNK
     Route: 058

REACTIONS (4)
  - Injection site pain [Not Recovered/Not Resolved]
  - Injection site bruising [Recovered/Resolved]
  - Injection site mass [Not Recovered/Not Resolved]
  - Injection site discolouration [Recovered/Resolved]
